FAERS Safety Report 16470419 (Version 4)
Quarter: 2019Q3

REPORT INFORMATION
  Report Type: Spontaneous
  Country: US (occurrence: US)
  Receive Date: 20190624
  Receipt Date: 20190729
  Transmission Date: 20191004
  Serious: Yes (Hospitalization, Other)
  Sender: FDA-Public Use
  Company Number: US-ALLERGAN-1925648US

PATIENT
  Sex: Female

DRUGS (6)
  1. ESTRADIOL ACETATE UNK [Suspect]
     Active Substance: ESTRADIOL ACETATE
     Indication: HORMONE LEVEL ABNORMAL
     Dosage: 1/2 APPLICATOR, EVERY 2 WEEKS
     Route: 067
     Dates: start: 20190602
  2. ESTRADIOL ACETATE UNK [Suspect]
     Active Substance: ESTRADIOL ACETATE
     Dosage: 1/4 APPLICATOR EVERY 2 WEEKS
     Route: 067
     Dates: start: 201808, end: 201904
  3. ESTRADIOL ACETATE UNK [Suspect]
     Active Substance: ESTRADIOL ACETATE
     Dosage: 1/2 APPLICATOR, EVERY OTHER DAY FOR THE FIRST WEEK
     Route: 067
     Dates: start: 20180802, end: 201808
  4. ESTRADIOL ACETATE UNK [Suspect]
     Active Substance: ESTRADIOL ACETATE
     Indication: BLADDER DISORDER
     Dosage: 1/2 APPLICATOR, EVERY 2 WEEKS
     Route: 067
     Dates: start: 20190519
  5. CHOLESTEROL MEDICATION [Concomitant]
     Active Substance: UNSPECIFIED INGREDIENT
     Indication: BLOOD CHOLESTEROL ABNORMAL
     Dosage: UNK
     Route: 048
  6. ESTRADIOL ACETATE UNK [Suspect]
     Active Substance: ESTRADIOL ACETATE
     Indication: URINARY RETENTION
     Dosage: 1/2 APPLICATOR EVERY 2 WEEKS
     Route: 067
     Dates: start: 20190616

REACTIONS (8)
  - Cystitis [Not Recovered/Not Resolved]
  - Hypersensitivity [Recovered/Resolved]
  - Incorrect dose administered [Unknown]
  - Lip swelling [Recovered/Resolved]
  - Pharyngeal swelling [Unknown]
  - Mouth swelling [Recovered/Resolved]
  - Angioedema [Recovered/Resolved]
  - Off label use [Unknown]

NARRATIVE: CASE EVENT DATE: 201904
